FAERS Safety Report 7245528-4 (Version None)
Quarter: 2011Q1

REPORT INFORMATION
  Report Type: 
  Country: None (occurrence: None)
  Receive Date: 20110118
  Receipt Date: 20110103
  Transmission Date: 20110831
  Serious: Yes (Other)
  Sender: FDA-Public Use
  Company Number: IDA-00319

PATIENT
  Age: 31 Year
  Sex: Female

DRUGS (2)
  1. PROPRANOLOL [Suspect]
     Indication: MIGRAINE
     Dosage: 80 MG DAILY, ORAL FORMULATION
     Route: 048
     Dates: start: 20091221
  2. (INFLUENZA VACCINE) [Suspect]
     Indication: PRODUCT USED FOR UNKNOWN INDICATION
     Dosage: 1 DF ONCE, INTRAMUSCULAR FORMULATION
     Route: 030
     Dates: start: 20091221

REACTIONS (1)
  - MULTIPLE SCLEROSIS RELAPSE [None]
